FAERS Safety Report 13892184 (Version 2)
Quarter: 2017Q4

REPORT INFORMATION
  Report Type: Report from Study
  Country: US (occurrence: US)
  Receive Date: 20170822
  Receipt Date: 20171018
  Transmission Date: 20180320
  Serious: Yes (Hospitalization)
  Sender: FDA-Public Use
  Company Number: PHEH2017US026337

PATIENT
  Age: 67 Year
  Sex: Male
  Weight: 187 kg

DRUGS (2)
  1. SANDIMMUNE [Suspect]
     Active Substance: CYCLOSPORINE
     Indication: LEUKAEMIA GRANULOCYTIC
     Dosage: 100 MG, UNK
     Route: 048
  2. SANDIMMUNE [Suspect]
     Active Substance: CYCLOSPORINE
     Dosage: 400 MG, UNK
     Route: 048

REACTIONS (3)
  - Product use in unapproved indication [Unknown]
  - Coma [Recovered/Resolved]
  - Coma [Recovered/Resolved]

NARRATIVE: CASE EVENT DATE: 20170710
